FAERS Safety Report 11872884 (Version 6)
Quarter: 2017Q4

REPORT INFORMATION
  Report Type: Report from Study
  Country: NL (occurrence: NL)
  Receive Date: 20151228
  Receipt Date: 20171127
  Transmission Date: 20180320
  Serious: No
  Sender: FDA-Public Use
  Company Number: NL-JNJFOC-20151218722

PATIENT
  Age: 48 Year
  Sex: Male
  Weight: 93 kg

DRUGS (5)
  1. STELARA [Suspect]
     Active Substance: USTEKINUMAB
     Indication: PSORIASIS
     Route: 058
     Dates: start: 20150817
  2. BETAMETHASONE. [Concomitant]
     Active Substance: BETAMETHASONE
     Route: 065
     Dates: start: 201103
  3. ENALAPRIL MALEATE. [Concomitant]
     Active Substance: ENALAPRIL MALEATE
     Route: 065
     Dates: start: 201301
  4. STELARA [Suspect]
     Active Substance: USTEKINUMAB
     Indication: PSORIASIS
     Route: 058
     Dates: start: 20110322, end: 20150616
  5. CALCIPOTRIOL [Concomitant]
     Active Substance: CALCIPOTRIENE
     Route: 065

REACTIONS (2)
  - Basal cell carcinoma [Recovered/Resolved]
  - Wound infection [Unknown]

NARRATIVE: CASE EVENT DATE: 20150630
